FAERS Safety Report 4785857-7 (Version None)
Quarter: 2005Q3

REPORT INFORMATION
  Report Type: 
  Country: None (occurrence: None)
  Receive Date: 20050930
  Receipt Date: 20050303
  Transmission Date: 20060218
  Serious: Yes (Hospitalization)
  Sender: FDA-Public Use
  Company Number: 2005FR-00306

PATIENT
  Sex: Male

DRUGS (1)
  1. PROZAC [Suspect]
     Dosage: 70 DOSAGE FORMS
     Dates: start: 20050129, end: 20050129

REACTIONS (5)
  - ASTHENIA [None]
  - GRAND MAL CONVULSION [None]
  - INTENTIONAL MISUSE [None]
  - OVERDOSE [None]
  - YAWNING [None]
